FAERS Safety Report 6138381-3 (Version None)
Quarter: 2009Q1

REPORT INFORMATION
  Report Type: 
  Country: None (occurrence: None)
  Receive Date: 20090327
  Receipt Date: 20090327
  Transmission Date: 20090719
  Serious: Yes (Life-Threatening, Hospitalization)
  Sender: FDA-Public Use
  Company Number: None

PATIENT
  Sex: Female
  Weight: 51.4833 kg

DRUGS (2)
  1. ERBITUX [Suspect]
     Indication: LIP NEOPLASM MALIGNANT STAGE UNSPECIFIED
     Dosage: 100MG  1 DOSE IV DRIP
     Route: 041
     Dates: start: 20090326, end: 20090326
  2. ERBITUX [Suspect]
     Indication: SQUAMOUS CELL CARCINOMA
     Dosage: 100MG  1 DOSE IV DRIP
     Route: 041
     Dates: start: 20090326, end: 20090326

REACTIONS (7)
  - BLOOD PRESSURE SYSTOLIC INCREASED [None]
  - CARDIO-RESPIRATORY ARREST [None]
  - DYSPNOEA [None]
  - FEELING HOT [None]
  - HEART RATE DECREASED [None]
  - INFUSION RELATED REACTION [None]
  - LOSS OF CONSCIOUSNESS [None]
